FAERS Safety Report 12478777 (Version 2)
Quarter: 2016Q3

REPORT INFORMATION
  Report Type: Report from Study
  Country: US (occurrence: US)
  Receive Date: 20160619
  Receipt Date: 20160719
  Transmission Date: 20161109
  Serious: Yes (Hospitalization)
  Sender: FDA-Public Use
  Company Number: US-BEH-2016070232

PATIENT
  Age: 71 Year
  Sex: Female
  Weight: 63.49 kg

DRUGS (35)
  1. MUCINEX [Concomitant]
     Active Substance: GUAIFENESIN
  2. PREDNISONE. [Concomitant]
     Active Substance: PREDNISONE
  3. SYNTHROID [Concomitant]
     Active Substance: LEVOTHYROXINE SODIUM
  4. PROAIR HFA [Concomitant]
     Active Substance: ALBUTEROL SULFATE
  5. XALATAN [Concomitant]
     Active Substance: LATANOPROST
  6. CYANOCOBALAMIN. [Concomitant]
     Active Substance: CYANOCOBALAMIN
  7. DIPHENHYDRAMINE. [Concomitant]
     Active Substance: DIPHENHYDRAMINE
  8. SINGULAIR [Concomitant]
     Active Substance: MONTELUKAST SODIUM
  9. MULTIVITAMIN                       /00097801/ [Concomitant]
     Active Substance: VITAMINS
  10. AMLODIPINE BESYLATE. [Concomitant]
     Active Substance: AMLODIPINE BESYLATE
  11. THEOPHYLLINE [Concomitant]
     Active Substance: THEOPHYLLINE ANHYDROUS
  12. SUDAFED [Concomitant]
     Active Substance: PSEUDOEPHEDRINE HYDROCHLORIDE
  13. SIMPONI [Concomitant]
     Active Substance: GOLIMUMAB
  14. TRAMADOL. [Concomitant]
     Active Substance: TRAMADOL
  15. METFORMIN HCL [Concomitant]
     Active Substance: METFORMIN HYDROCHLORIDE
  16. ZEMAIRA [Suspect]
     Active Substance: .ALPHA.1-PROTEINASE INHIBITOR HUMAN
     Indication: ALPHA-1 ANTI-TRYPSIN DEFICIENCY
     Dosage: 60 MG/KG, QW
     Route: 042
     Dates: start: 20121111
  17. LISINOPRIL AND HYDROCHLOROTHIAZIDE [Concomitant]
     Active Substance: HYDROCHLOROTHIAZIDE\LISINOPRIL
  18. SYMBICORT [Concomitant]
     Active Substance: BUDESONIDE\FORMOTEROL FUMARATE DIHYDRATE
  19. NITROGLYCERIN. [Concomitant]
     Active Substance: NITROGLYCERIN
  20. LIDOCAINE/PRILOCAINE [Concomitant]
     Active Substance: LIDOCAINE\PRILOCAINE
  21. METHOTREXATE. [Concomitant]
     Active Substance: METHOTREXATE
  22. ALEVE [Concomitant]
     Active Substance: NAPROXEN SODIUM
  23. GLIPIZIDE. [Concomitant]
     Active Substance: GLIPIZIDE
  24. FERROUS SULFATE EXSICCATED [Concomitant]
  25. SPIRIVA [Concomitant]
     Active Substance: TIOTROPIUM BROMIDE MONOHYDRATE
  26. FOLIC ACID. [Concomitant]
     Active Substance: FOLIC ACID
  27. METOPROLOL TARTRATE. [Concomitant]
     Active Substance: METOPROLOL TARTRATE
  28. ASPIRIN. [Concomitant]
     Active Substance: ASPIRIN
  29. PEPPERMINT                         /01649801/ [Concomitant]
  30. OXYGEN. [Concomitant]
     Active Substance: OXYGEN
  31. VITAMIN B12 [Concomitant]
     Active Substance: CYANOCOBALAMIN
  32. AGGRENOX [Concomitant]
     Active Substance: ASPIRIN\DIPYRIDAMOLE
  33. ARIA                               /00495202/ [Concomitant]
  34. HEPARIN [Concomitant]
     Active Substance: HEPARIN SODIUM
  35. SODIUM CHLORIDE. [Concomitant]
     Active Substance: SODIUM CHLORIDE

REACTIONS (1)
  - Cerebrovascular accident [Not Recovered/Not Resolved]

NARRATIVE: CASE EVENT DATE: 20160608
